FAERS Safety Report 21800961 (Version 1)
Quarter: 2022Q4

REPORT INFORMATION
  Report Type: Other
  Country: MX (occurrence: None)
  Receive Date: 20221230
  Receipt Date: 20221230
  Transmission Date: 20230113
  Serious: Yes (Disabling, Other)
  Sender: FDA-Public Use
  Company Number: MX-ROCHE-3251423

PATIENT
  Sex: Female
  Weight: 46.5 kg

DRUGS (5)
  1. KADCYLA [Suspect]
     Active Substance: ADO-TRASTUZUMAB EMTANSINE
     Indication: Breast cancer
     Dosage: DOSE WAS NOT PROVIDED, FORM OF ADMIN: TRASTUZUMAB EMTANSINA 160 MG
     Route: 042
     Dates: start: 20220803
  2. TRASTUZUMAB [Suspect]
     Active Substance: TRASTUZUMAB
     Indication: Breast cancer
     Dosage: DOSE AND FREQUENCY WERE NOT REPORTED
     Route: 041
     Dates: start: 20190305, end: 2020
  3. CAPECITABINE [Suspect]
     Active Substance: CAPECITABINE
     Indication: Breast cancer
     Dosage: DOSE AND FREQUENCY WERE NOT REPORTED
     Route: 048
     Dates: start: 2020, end: 2021
  4. VINORELBINE [Suspect]
     Active Substance: VINORELBINE TARTRATE
     Indication: Breast cancer
     Dosage: DOSE AND FREQUENCY WERE NOT REPORTED, 10 DOSES
     Route: 065
  5. DOCETAXEL [Concomitant]
     Active Substance: DOCETAXEL
     Dates: start: 20190305

REACTIONS (42)
  - Clumsiness [Unknown]
  - Tumour haemorrhage [Recovered/Resolved]
  - Decreased immune responsiveness [Not Recovered/Not Resolved]
  - Breast cancer metastatic [Recovered/Resolved]
  - Haematemesis [Recovered/Resolved]
  - Recurrent cancer [Recovering/Resolving]
  - Radiation injury [Unknown]
  - Biliary colic [Recovering/Resolving]
  - Discomfort [Unknown]
  - Invasive ductal breast carcinoma [Recovering/Resolving]
  - Malignant neoplasm progression [Recovering/Resolving]
  - Mobility decreased [Recovered/Resolved]
  - Asthenia [Not Recovered/Not Resolved]
  - Constipation [Recovering/Resolving]
  - Gastric disorder [Not Recovered/Not Resolved]
  - General physical health deterioration [Not Recovered/Not Resolved]
  - Decreased appetite [Recovered/Resolved]
  - Weight decreased [Unknown]
  - Dizziness [Recovering/Resolving]
  - Taste disorder [Not Recovered/Not Resolved]
  - Tracheal pain [Recovered/Resolved]
  - Oesophageal pain [Recovered/Resolved]
  - Gastritis [Not Recovered/Not Resolved]
  - Illness [Unknown]
  - Eructation [Recovered/Resolved]
  - Pain [Unknown]
  - Hypoaesthesia [Not Recovered/Not Resolved]
  - Hypoaesthesia [Not Recovered/Not Resolved]
  - Paraesthesia [Not Recovered/Not Resolved]
  - Paraesthesia [Not Recovered/Not Resolved]
  - Peripheral swelling [Recovered/Resolved]
  - Neoplasm [Recovering/Resolving]
  - Scab [Recovering/Resolving]
  - Lymphoedema [Recovered/Resolved]
  - Tracheal disorder [Recovered/Resolved]
  - Angiopathy [Recovering/Resolving]
  - Cholelithiasis [Recovering/Resolving]
  - Peripheral swelling [Recovering/Resolving]
  - Oedema genital [Recovering/Resolving]
  - Palpitations [Recovering/Resolving]
  - Drug ineffective [Unknown]
  - Neoplasm [Recovering/Resolving]

NARRATIVE: CASE EVENT DATE: 20200101
